FAERS Safety Report 20561636 (Version 1)
Quarter: 2022Q1

REPORT INFORMATION
  Report Type: Spontaneous
  Country: US (occurrence: US)
  Receive Date: 20220307
  Receipt Date: 20220307
  Transmission Date: 20220423
  Serious: No
  Sender: FDA-Public Use
  Company Number: US-BIOGEN-2022BI01102220

PATIENT
  Sex: Female

DRUGS (1)
  1. TECFIDERA [Suspect]
     Active Substance: DIMETHYL FUMARATE
     Indication: Multiple sclerosis
     Route: 065
     Dates: start: 20180905, end: 20220301

REACTIONS (5)
  - Underdose [Recovered/Resolved]
  - COVID-19 [Unknown]
  - Flushing [Unknown]
  - Infection [Unknown]
  - Muscular weakness [Unknown]
